FAERS Safety Report 8611281-2 (Version None)
Quarter: 2012Q3

REPORT INFORMATION
  Report Type: 
  Country: None (occurrence: None)
  Receive Date: 20120822
  Receipt Date: 20120809
  Transmission Date: 20120928
  Serious: Yes (Hospitalization, Other)
  Sender: FDA-Public Use
  Company Number: US-ELI_LILLY_AND_COMPANY-US201208003788

PATIENT
  Sex: Male

DRUGS (4)
  1. HUMULIN R [Suspect]
     Indication: DIABETES MELLITUS
     Dosage: UNK UNK, TID
     Dates: start: 20090101
  2. HUMALOG [Suspect]
     Indication: DIABETES MELLITUS
  3. HUMULIN R [Suspect]
  4. GLYBURIDE [Concomitant]

REACTIONS (6)
  - HOSPITALISATION [None]
  - INCORRECT DOSE ADMINISTERED [None]
  - DRUG INEFFECTIVE [None]
  - CARDIAC DISORDER [None]
  - BLOOD GLUCOSE INCREASED [None]
  - BLINDNESS [None]
